FAERS Safety Report 22149057 (Version 1)
Quarter: 2023Q1

REPORT INFORMATION
  Report Type: Report from Study
  Country: US (occurrence: US)
  Receive Date: 20230328
  Receipt Date: 20230328
  Transmission Date: 20230418
  Serious: Yes (Death)
  Sender: FDA-Public Use
  Company Number: US-ABBVIE-4707410

PATIENT
  Age: 73 Year
  Sex: Male

DRUGS (30)
  1. VENCLEXTA [Suspect]
     Active Substance: VENETOCLAX
     Indication: Lung carcinoma cell type unspecified stage 0
     Dosage: FORM STRENGTH: 100 MG
     Route: 048
     Dates: start: 20221109
  2. TYLENOL EXTRA STRENGTH [Concomitant]
     Active Substance: ACETAMINOPHEN
     Indication: Neuralgia
     Dosage: TIME INTERVAL: 0.33333333 DAYS
     Route: 048
  3. TYLENOL EXTRA STRENGTH [Concomitant]
     Active Substance: ACETAMINOPHEN
     Indication: Neuralgia
     Dosage: 2 TABS DAILY
     Route: 048
  4. GARLIC [Concomitant]
     Active Substance: GARLIC
     Indication: Product used for unknown indication
     Dosage: FORM STRENGTH- 500 MG
     Route: 048
  5. COENZYME Q10 [Concomitant]
     Active Substance: DIETARY SUPPLEMENT\UBIDECARENONE
     Indication: Product used for unknown indication
     Dosage: FORM STRENGTH- 200 MG
     Route: 048
  6. HERBALS\SAW PALMETTO [Concomitant]
     Active Substance: HERBALS\SAW PALMETTO
     Indication: Product used for unknown indication
     Route: 048
  7. ALLOPURINOL [Concomitant]
     Active Substance: ALLOPURINOL
     Indication: Product used for unknown indication
     Dosage: FORM STRENGTH- 300 MG
     Route: 048
  8. PROCHLORPERAZINE MALEATE [Concomitant]
     Active Substance: PROCHLORPERAZINE MALEATE
     Indication: Product used for unknown indication
     Dosage: TIME INTERVAL: 0.33333333 DAYS: 1PO 3 TIMES QD PRN
     Route: 048
  9. TURMERIC [Concomitant]
     Active Substance: TURMERIC
     Indication: Product used for unknown indication
     Dosage: TURMERIC 900MG -TURMERIC ROOT EXTRACT 100MG -BLACK PAPER 5MG CAPSULE
     Route: 048
  10. ACYCLOVIR [Concomitant]
     Active Substance: ACYCLOVIR
     Indication: Product used for unknown indication
     Dosage: FORM STRENGTH: 400 MG
     Route: 048
  11. GEMTESA [Concomitant]
     Active Substance: VIBEGRON
     Indication: Product used for unknown indication
     Dosage: FORM STRENGTH- 75 MG
     Route: 048
  12. SERTRALINE [Concomitant]
     Active Substance: SERTRALINE HYDROCHLORIDE
     Indication: Product used for unknown indication
     Dosage: FORM STRENGTH- 25 MG
     Route: 048
  13. GABAPENTIN [Concomitant]
     Active Substance: GABAPENTIN
     Indication: Neuropathy peripheral
     Dosage: TIME INTERVAL: 0.33333333 DAYS
     Route: 048
  14. Claritin liqui-gel [Concomitant]
     Indication: Product used for unknown indication
     Route: 048
  15. SYNTHROID [Concomitant]
     Active Substance: LEVOTHYROXINE SODIUM
     Indication: Product used for unknown indication
     Route: 048
  16. SYNTHROID [Concomitant]
     Active Substance: LEVOTHYROXINE SODIUM
     Indication: Product used for unknown indication
     Route: 048
  17. TRAMADOL [Concomitant]
     Active Substance: TRAMADOL
     Indication: Neuralgia
     Route: 048
  18. COMPAZINE [Concomitant]
     Active Substance: PROCHLORPERAZINE MALEATE
     Indication: Nausea
     Dosage: FORM STRENGTH- 10 MG
     Route: 048
  19. ACETAMINOPHEN [Concomitant]
     Active Substance: ACETAMINOPHEN
     Indication: Product used for unknown indication
     Dosage: 2 PO Q8H HOURS PRN/FORM STRENGTH: 500 MG
     Route: 048
  20. Lidocaine- prilocaine [Concomitant]
     Indication: Product used for unknown indication
     Dosage: 2.5%-2.5% CREAM
  21. ALEVE [Concomitant]
     Active Substance: NAPROXEN SODIUM
     Indication: Product used for unknown indication
     Dosage: FORM STRENGTH- 220 MG
     Route: 048
  22. VITAMIN D [Concomitant]
     Active Substance: VITAMIN D NOS
     Indication: Product used for unknown indication
     Dosage: 4000 UNIT CAPSULE
     Route: 048
  23. VITAMIN C [Concomitant]
     Active Substance: ASCORBIC ACID
     Indication: Product used for unknown indication
     Dosage: 3 TABS PO QD
     Route: 048
  24. UDENYCA [Concomitant]
     Active Substance: PEGFILGRASTIM-CBQV
     Indication: Product used for unknown indication
     Dosage: 6MG/0.6 ML SYRINGE SC TODAY
     Route: 058
  25. ONDANSETRON [Concomitant]
     Active Substance: ONDANSETRON
     Indication: Nausea
     Dosage: DISSOLVE 1 TABLET PO Q 8 HRS PRN( STARTING 3 DAYS AFTER TREATMENT) 4MG DISINTEGRATING TABLET
     Route: 048
  26. FLOMAX [Concomitant]
     Active Substance: TAMSULOSIN HYDROCHLORIDE
     Indication: Product used for unknown indication
     Route: 048
  27. DIETARY SUPPLEMENT\HERBALS\MILK THISTLE [Concomitant]
     Active Substance: DIETARY SUPPLEMENT\HERBALS\MILK THISTLE
     Indication: Product used for unknown indication
     Dosage: FORM STRENGTH- 175 MG
     Route: 048
  28. EYLEA [Concomitant]
     Active Substance: AFLIBERCEPT
     Indication: Product used for unknown indication
     Dosage: INJECT 0.05 ML INTRAVENOUSLY EVERY 6 WEEKS
  29. CIALIS [Concomitant]
     Active Substance: TADALAFIL
     Indication: Product used for unknown indication
     Dosage: TAKE 0.5 TABLETS PO QD/ FORM STRENGTH- 10 MG
     Route: 048
  30. VITAMIN E [Concomitant]
     Active Substance: .ALPHA.-TOCOPHEROL
     Indication: Product used for unknown indication
     Dosage: 400 UNIT CAPSULE
     Route: 048

REACTIONS (1)
  - Death [Fatal]

NARRATIVE: CASE EVENT DATE: 20230223
